FAERS Safety Report 9745573 (Version 1)
Quarter: 2013Q4

REPORT INFORMATION
  Report Type: Spontaneous
  Country: US (occurrence: None)
  Receive Date: 20131205
  Receipt Date: 20131205
  Transmission Date: 20140711
  Serious: No
  Sender: FDA-Public Use
  Company Number: None

PATIENT
  Age: 71 Year
  Sex: Female
  Weight: 64.86 kg

DRUGS (7)
  1. LEVOFLOXACIN [Suspect]
     Indication: PNEUMONIA
     Route: 042
     Dates: start: 20130829, end: 20130829
  2. METRONIDAZOLE [Concomitant]
  3. ALBUTEROL [Concomitant]
  4. LISINOPRIL [Concomitant]
  5. TAPAZOLE [Concomitant]
  6. TRENTAL [Concomitant]
  7. OXYGEN [Concomitant]

REACTIONS (3)
  - Erythema [None]
  - Urticaria [None]
  - Injection site erythema [None]
